FAERS Safety Report 6755903-X (Version None)
Quarter: 2010Q2

REPORT INFORMATION
  Report Type: 
  Country: None (occurrence: None)
  Receive Date: 20100604
  Receipt Date: 20100601
  Transmission Date: 20101027
  Serious: Yes (Hospitalization, Other)
  Sender: FDA-Public Use
  Company Number: FR-BRISTOL-MYERS SQUIBB COMPANY-15130073

PATIENT
  Age: 74 Year
  Sex: Female

DRUGS (7)
  1. APROVEL TABS 300 MG [Suspect]
     Indication: HYPERTENSION
     Route: 048
     Dates: end: 20090624
  2. BI-PROFENID [Suspect]
     Route: 048
     Dates: end: 20090624
  3. LASIX [Suspect]
     Indication: HYPERTENSION
     Dates: end: 20090624
  4. HYPERIUM [Concomitant]
  5. LERCAN [Concomitant]
  6. ALLOPURINOL [Concomitant]
     Route: 048
  7. PREVISCAN [Concomitant]

REACTIONS (3)
  - INTERNATIONAL NORMALISED RATIO INCREASED [None]
  - RENAL FAILURE ACUTE [None]
  - UROSEPSIS [None]
